FAERS Safety Report 12256939 (Version 2)
Quarter: 2016Q2

REPORT INFORMATION
  Report Type: Spontaneous
  Country: IT (occurrence: IT)
  Receive Date: 20160412
  Receipt Date: 20160425
  Transmission Date: 20160815
  Serious: Yes (Death)
  Sender: FDA-Public Use
  Company Number: IT-ROCHE-1738378

PATIENT
  Age: 70 Year
  Sex: Female

DRUGS (4)
  1. LOBIVON [Concomitant]
     Active Substance: NEBIVOLOL HYDROCHLORIDE
     Indication: HYPERTENSION
  2. CARBOPLATIN. [Concomitant]
     Active Substance: CARBOPLATIN
     Indication: MALIGNANT PERITONEAL NEOPLASM
  3. AVASTIN [Suspect]
     Active Substance: BEVACIZUMAB
     Indication: MALIGNANT PERITONEAL NEOPLASM
     Route: 065
     Dates: start: 20160322
  4. TAXOL [Concomitant]
     Active Substance: PACLITAXEL
     Indication: MALIGNANT PERITONEAL NEOPLASM

REACTIONS (3)
  - Sepsis [Fatal]
  - Cerebrovascular accident [Fatal]
  - Pancytopenia [Fatal]
